FAERS Safety Report 13122447 (Version 1)
Quarter: 2017Q1

REPORT INFORMATION
  Report Type: Spontaneous
  Country: US (occurrence: US)
  Receive Date: 20170117
  Receipt Date: 20170117
  Transmission Date: 20170428
  Serious: No
  Sender: FDA-Public Use
  Company Number: US-ELI_LILLY_AND_COMPANY-US201701003837

PATIENT
  Sex: Female

DRUGS (3)
  1. HUMALOG [Suspect]
     Active Substance: INSULIN LISPRO
     Indication: TYPE 2 DIABETES MELLITUS
     Dosage: 4 U, SLIDING SCALE
     Route: 065
     Dates: start: 201608
  2. DILTIAZEM. [Concomitant]
     Active Substance: DILTIAZEM
     Indication: HYPERTENSION
  3. LANTUS [Concomitant]
     Active Substance: INSULIN GLARGINE
     Dosage: 12 U, UNK

REACTIONS (1)
  - Mobility decreased [Recovered/Resolved]

NARRATIVE: CASE EVENT DATE: 201608
